FAERS Safety Report 13447470 (Version 4)
Quarter: 2017Q2

REPORT INFORMATION
  Report Type: Spontaneous
  Country: US (occurrence: US)
  Receive Date: 20170417
  Receipt Date: 20170627
  Transmission Date: 20170830
  Serious: Yes (Hospitalization, Other)
  Sender: FDA-Public Use
  Company Number: PHEH2017US010608

PATIENT
  Age: 45 Year
  Sex: Female
  Weight: 113.3 kg

DRUGS (1)
  1. COSENTYX [Suspect]
     Active Substance: SECUKINUMAB
     Indication: PUSTULAR PSORIASIS
     Dosage: 300 MG, QMO
     Route: 058
     Dates: start: 20170113

REACTIONS (9)
  - Alopecia [Unknown]
  - Mass [Unknown]
  - Product use in unapproved indication [Unknown]
  - Hordeolum [Unknown]
  - Acne pustular [Unknown]
  - Migraine [Unknown]
  - Lung infection [Unknown]
  - Acne [Unknown]
  - Urinary tract infection [Unknown]

NARRATIVE: CASE EVENT DATE: 20170113
